FAERS Safety Report 8609328-2 (Version None)
Quarter: 2012Q3

REPORT INFORMATION
  Report Type: 
  Country: None (occurrence: None)
  Receive Date: 20120821
  Receipt Date: 20120817
  Transmission Date: 20120928
  Serious: Yes (Death, Other)
  Sender: FDA-Public Use
  Company Number: PHHY2012GB071828

PATIENT
  Age: 9 Day
  Sex: Male

DRUGS (1)
  1. METHADONE HYDROCHLORIDE [Suspect]

REACTIONS (3)
  - DEATH [None]
  - EXPOSURE DURING BREAST FEEDING [None]
  - DRUG LEVEL INCREASED [None]
